FAERS Safety Report 21035985 (Version 4)
Quarter: 2023Q4

REPORT INFORMATION
  Report Type: Spontaneous
  Country: CA (occurrence: CA)
  Receive Date: 20220701
  Receipt Date: 20231220
  Transmission Date: 20240109
  Serious: Yes (Other)
  Sender: FDA-Public Use
  Company Number: CA-BAUSCH-BL-2022-016425

PATIENT
  Age: 43 Year
  Sex: Female

DRUGS (11)
  1. NORITATE [Suspect]
     Active Substance: METRONIDAZOLE
     Indication: Product used for unknown indication
     Route: 061
  2. OMALIZUMAB [Suspect]
     Active Substance: OMALIZUMAB
     Indication: Chronic spontaneous urticaria
     Route: 058
  3. OMALIZUMAB [Suspect]
     Active Substance: OMALIZUMAB
     Route: 058
  4. OMALIZUMAB [Suspect]
     Active Substance: OMALIZUMAB
     Route: 058
  5. OMALIZUMAB [Suspect]
     Active Substance: OMALIZUMAB
     Route: 065
  6. BENADRYL [Concomitant]
     Active Substance: DIPHENHYDRAMINE HYDROCHLORIDE
     Indication: Product used for unknown indication
     Dosage: NOT SPECIFIED
     Route: 065
  7. CYCLOSPORINE [Concomitant]
     Active Substance: CYCLOSPORINE
     Indication: Product used for unknown indication
     Dosage: NOT SPECIFIED
     Route: 065
  8. HYDROXYZINE [Concomitant]
     Active Substance: HYDROXYZINE HYDROCHLORIDE
     Indication: Product used for unknown indication
     Route: 065
  9. PREDNISONE [Concomitant]
     Active Substance: PREDNISONE
     Indication: Product used for unknown indication
     Dosage: NOT SPECIFIED
     Route: 065
  10. REACTINE [Concomitant]
     Indication: Product used for unknown indication
     Dosage: NOT SPECIFIED
     Route: 065
  11. NASONEX [Concomitant]
     Active Substance: MOMETASONE FUROATE
     Indication: Product used for unknown indication
     Dosage: SPRAY, METERED DOSE
     Route: 065

REACTIONS (12)
  - Eczema [Recovered/Resolved]
  - Eczema eyelids [Recovered/Resolved]
  - Scratch [Recovered/Resolved]
  - Skin lesion [Recovered/Resolved]
  - Stress [Recovered/Resolved]
  - Perioral dermatitis [Recovered/Resolved]
  - Pruritus [Recovered/Resolved]
  - Urticaria [Recovered/Resolved]
  - Urticaria [Recovered/Resolved]
  - Laryngeal neoplasm [Recovered/Resolved]
  - Drug ineffective [Recovered/Resolved]
  - Product dose omission issue [Recovered/Resolved]
